FAERS Safety Report 17694407 (Version 1)
Quarter: 2020Q2

REPORT INFORMATION
  Report Type: Spontaneous
  Country: US (occurrence: US)
  Receive Date: 20200422
  Receipt Date: 20200422
  Transmission Date: 20200714
  Serious: Yes (Other)
  Sender: FDA-Public Use
  Company Number: US-AMERICAN REGENT INC-2020000902

PATIENT
  Age: 4 Decade
  Sex: Female

DRUGS (2)
  1. ADENOSINE INJECTION, USP (6404-10) [Suspect]
     Active Substance: ADENOSINE
     Dosage: 12 MILLIGRAM, SINGLE
     Route: 042
  2. ADENOSINE INJECTION, USP (6404-10) [Suspect]
     Active Substance: ADENOSINE
     Indication: VENTRICULAR TACHYCARDIA
     Dosage: 6 MILLIGRAM, SINGLE
     Route: 042

REACTIONS (3)
  - Ventricular tachycardia [Recovered/Resolved]
  - Drug ineffective for unapproved indication [Unknown]
  - Product use in unapproved indication [Unknown]
